FAERS Safety Report 18759785 (Version 2)
Quarter: 2021Q1

REPORT INFORMATION
  Report Type: Spontaneous
  Country: FR (occurrence: FR)
  Receive Date: 20210120
  Receipt Date: 20210206
  Transmission Date: 20210419
  Serious: Yes (Death, Other)
  Sender: FDA-Public Use
  Company Number: FR-ROCHE-2748556

PATIENT
  Age: 71 Year
  Sex: Male

DRUGS (4)
  1. HEMLIBRA [Suspect]
     Active Substance: EMICIZUMAB-KXWH
     Indication: HAEMOPHILIA A WITH ANTI FACTOR VIII
     Route: 058
     Dates: start: 20200910, end: 20201218
  2. ZOPICLONE [Concomitant]
     Active Substance: ZOPICLONE
  3. PARACETAMOL [Concomitant]
     Active Substance: ACETAMINOPHEN
  4. LAMALINE [Concomitant]

REACTIONS (3)
  - Death [Fatal]
  - Discoloured vomit [Unknown]
  - Abdominal pain [Unknown]

NARRATIVE: CASE EVENT DATE: 202012
